FAERS Safety Report 19194965 (Version 2)
Quarter: 2023Q2

REPORT INFORMATION
  Report Type: Spontaneous
  Country: DE (occurrence: DE)
  Receive Date: 20210429
  Receipt Date: 20230515
  Transmission Date: 20230721
  Serious: Yes (Hospitalization, Other)
  Sender: FDA-Public Use
  Company Number: DE-BROWN + BURK(UK) LIMITED-ML2021-01207

PATIENT
  Age: 62 Year
  Sex: Female
  Weight: 65 kg

DRUGS (14)
  1. RASAGILINE [Suspect]
     Active Substance: RASAGILINE
     Indication: Parkinsonism
  2. RASAGILINE [Suspect]
     Active Substance: RASAGILINE
     Indication: Depressive symptom
  3. RANOLAZINE [Suspect]
     Active Substance: RANOLAZINE
     Indication: Depression
  4. RANOLAZINE [Suspect]
     Active Substance: RANOLAZINE
     Indication: Hypertension
  5. MOCLOBEMIDE [Suspect]
     Active Substance: MOCLOBEMIDE
     Indication: Hypertension
     Dosage: THE CURRENT DOSE ; DOSE INCREASED ABOUT 1 YEAR PRIOR TO ADMISSION
  6. MOCLOBEMIDE [Suspect]
     Active Substance: MOCLOBEMIDE
     Indication: Parkinson^s disease
     Dosage: ABOUT 1 YEAR
  7. MOCLOBEMIDE [Suspect]
     Active Substance: MOCLOBEMIDE
     Indication: Depressive symptom
  8. PRAMIPEXOLE [Suspect]
     Active Substance: PRAMIPEXOLE
     Indication: Parkinson^s disease
  9. TRAZODONE HYDROCHLORIDE [Suspect]
     Active Substance: TRAZODONE HYDROCHLORIDE
     Indication: Insomnia
  10. BENSERAZIDE\LEVODOPA [Suspect]
     Active Substance: BENSERAZIDE\LEVODOPA
     Indication: Parkinson^s disease
     Dosage: 200+50 MG/DAY
  11. LEVOTHYROXINE [Suspect]
     Active Substance: LEVOTHYROXINE
     Indication: Hypothyroidism
  12. MIRTAZAPINE [Suspect]
     Active Substance: MIRTAZAPINE
     Indication: Insomnia
     Dosage: TREATMENT TRIAL
  13. AGOMELATINE [Suspect]
     Active Substance: AGOMELATINE
     Indication: Insomnia
     Dosage: 50 MILLIGRAM, QD
  14. AGOMELATINE [Suspect]
     Active Substance: AGOMELATINE
     Indication: Hypertension

REACTIONS (6)
  - Drug level increased [Recovered/Resolved]
  - Autonomic nervous system imbalance [Recovered/Resolved]
  - Condition aggravated [Recovered/Resolved]
  - Serum serotonin increased [Recovered/Resolved]
  - Serotonin syndrome [Recovered/Resolved]
  - Drug interaction [Recovered/Resolved]
